FAERS Safety Report 6245584-6 (Version None)
Quarter: 2009Q2

REPORT INFORMATION
  Report Type: 
  Country: None (occurrence: None)
  Receive Date: 20090619
  Receipt Date: 20090407
  Transmission Date: 20091009
  Serious: No
  Sender: FDA-Public Use
  Company Number: ALL1-2009-00916

PATIENT
  Age: 14 Year
  Sex: Female
  Weight: 61.2 kg

DRUGS (1)
  1. VYVANSE [Suspect]
     Indication: ATTENTION DEFICIT/HYPERACTIVITY DISORDER
     Dosage: 30 MG, 1X/DAY:QD, ORAL
     Route: 048
     Dates: start: 20090302, end: 20090407

REACTIONS (4)
  - AGITATION [None]
  - MOOD ALTERED [None]
  - NEGATIVISM [None]
  - OFF LABEL USE [None]
